FAERS Safety Report 6470083-6 (Version None)
Quarter: 2009Q4

REPORT INFORMATION
  Report Type: 
  Country: None (occurrence: None)
  Receive Date: 20091203
  Receipt Date: 20091126
  Transmission Date: 20100525
  Serious: Yes (Hospitalization)
  Sender: FDA-Public Use
  Company Number: DE-PFIZER INC-2009303031

PATIENT
  Age: 79 Year
  Sex: Male
  Weight: 98 kg

DRUGS (10)
  1. INSPRA [Suspect]
     Indication: CARDIAC FAILURE
     Dosage: 25 MG, 1X/DAY
     Route: 048
     Dates: start: 20080901
  2. SIMVASTATIN [Suspect]
     Dosage: 40 MG, 1X/DAY
     Route: 048
     Dates: start: 20070901, end: 20090406
  3. AMOXICILLIN AND CLAVULANATE POTASSIUM [Suspect]
     Indication: URINARY TRACT INFECTION
     Dosage: 875 MG AMOXICILLIN/125 MG CLAVULANIC ACID
     Route: 048
     Dates: start: 20090318, end: 20090328
  4. INSUMAN COMB ^HOECHST MARION ROUSSEL^ [Suspect]
     Indication: TYPE 2 DIABETES MELLITUS
     Dosage: 28/0/8 IU/TWICE DAILY
     Route: 058
     Dates: start: 20070901
  5. KALINOR [Suspect]
     Indication: ELECTROLYTE SUBSTITUTION THERAPY
     Dosage: 1 DF, 2X/DAY
     Route: 048
  6. EMBOLEX [Suspect]
     Indication: BEDRIDDEN
     Dosage: 3000 IU, 1X/DAY
     Route: 058
     Dates: start: 20080901
  7. OMEPRAZOLE [Suspect]
     Indication: PROPHYLAXIS AGAINST GASTROINTESTINAL ULCER
     Dosage: 40 MG, 1X/DAY
     Route: 048
     Dates: start: 20080901
  8. TORASEMIDE [Suspect]
     Indication: RENAL IMPAIRMENT
     Dosage: 100 MG, 1X/DAY
     Route: 048
  9. VOLTAREN DISPERS ^NOVARTIS^ [Suspect]
     Indication: OSTEOARTHRITIS
     Dosage: 1-2 TABS AS NEEDED/WEEK
     Route: 048
     Dates: start: 20070101, end: 20091001
  10. STILNOX [Concomitant]
     Indication: SLEEP DISORDER
     Dosage: 10 MG, 1X/DAY
     Route: 048

REACTIONS (2)
  - DIARRHOEA [None]
  - HEPATIC ENZYME INCREASED [None]
